FAERS Safety Report 7625624-X (Version None)
Quarter: 2011Q3

REPORT INFORMATION
  Report Type: 
  Country: None (occurrence: None)
  Receive Date: 20110721
  Receipt Date: 20101124
  Transmission Date: 20111222
  Serious: No
  Sender: FDA-Public Use
  Company Number: US-BAYER-2011-001741

PATIENT
  Age: 42 Year
  Sex: Female
  Weight: 84.807 kg

DRUGS (8)
  1. HYDROCODONE [Concomitant]
  2. IBUPROFEN [Concomitant]
  3. TIZANIDINE HCL [Concomitant]
     Dosage: 2 MG TAB
  4. ALPRAZOLAM [Concomitant]
     Dosage: 0.25 MG TAB
  5. RANITIDINE [Concomitant]
     Dosage: 150 MG CAP
  6. BETASERON [Suspect]
     Dosage: 0.25 MG, QOD
     Route: 058
  7. PROMETHAZINE [Concomitant]
     Dosage: 12.5 MG TAB
  8. CALCIUM CARBONATE [Concomitant]
     Dosage: 500 TAB

REACTIONS (3)
  - INJECTION SITE PAIN [None]
  - INJECTION SITE MASS [None]
  - INJECTION SITE DISCOLOURATION [None]
